FAERS Safety Report 10057885 (Version 2)
Quarter: 2014Q2

REPORT INFORMATION
  Report Type: Spontaneous
  Country: DE (occurrence: None)
  Receive Date: 20140402
  Receipt Date: 20140611
  Transmission Date: 20141212
  Serious: Yes (Hospitalization)
  Sender: FDA-Public Use
  Company Number: 2014030102

PATIENT
  Age: 52 Year
  Sex: Female

DRUGS (2)
  1. ZOLPIDEM TARTRATE [Suspect]
     Indication: INSOMNIA
     Dosage: INCREASED DOSE UP TO 19X10MG DAILY, (10M MG, 2 IN 1 D), ORAL?
     Route: 048
     Dates: start: 201202, end: 2012
  2. LORAZEPAM (LORAZEPAM) [Concomitant]

REACTIONS (24)
  - Weight decreased [None]
  - Polydipsia [None]
  - Drug withdrawal syndrome [None]
  - Agitation [None]
  - Bulimia nervosa [None]
  - Drug dependence [None]
  - Impaired work ability [None]
  - General physical health deterioration [None]
  - Asthenia [None]
  - Skin discolouration [None]
  - Decreased appetite [None]
  - Mood altered [None]
  - Suicidal ideation [None]
  - Hyponatraemia [None]
  - Hyperkalaemia [None]
  - Detoxification [None]
  - Depression [None]
  - Parosmia [None]
  - Drug abuse [None]
  - Drug tolerance [None]
  - Middle insomnia [None]
  - Drug dependence [None]
  - Parosmia [None]
  - Feeling of despair [None]
